FAERS Safety Report 8166475-X (Version None)
Quarter: 2012Q1

REPORT INFORMATION
  Report Type: 
  Country: None (occurrence: None)
  Receive Date: 20120227
  Receipt Date: 20110829
  Transmission Date: 20120608
  Serious: Yes (Other)
  Sender: FDA-Public Use
  Company Number: US-MYLANLABS-2011S1018206

PATIENT
  Sex: Female

DRUGS (4)
  1. AMNESTEEM [Suspect]
     Indication: ACNE
     Dates: start: 20060101, end: 20070101
  2. SOTRET [Suspect]
     Indication: ACNE
     Dates: start: 20060101, end: 20060101
  3. ACCUTANE [Suspect]
     Indication: ACNE
     Dates: start: 20040101, end: 20050101
  4. AMNESTEEM [Suspect]
     Dates: start: 20090101, end: 20090101

REACTIONS (1)
  - COLITIS ULCERATIVE [None]
